FAERS Safety Report 16388298 (Version 1)
Quarter: 2019Q2

REPORT INFORMATION
  Report Type: Spontaneous
  Country: US (occurrence: US)
  Receive Date: 20190604
  Receipt Date: 20190604
  Transmission Date: 20190711
  Serious: No
  Sender: FDA-Public Use
  Company Number: US-PFIZER INC-2019001474

PATIENT
  Age: 93 Year
  Sex: Female

DRUGS (1)
  1. LYRICA [Suspect]
     Active Substance: PREGABALIN
     Dosage: 75 MG TWICE A DAY
     Route: 048
     Dates: start: 20181224

REACTIONS (2)
  - Visual impairment [Unknown]
  - Hypoacusis [Unknown]
